FAERS Safety Report 7336039-6 (Version None)
Quarter: 2011Q1

REPORT INFORMATION
  Report Type: 
  Country: None (occurrence: None)
  Receive Date: 20110228
  Receipt Date: 20110218
  Transmission Date: 20110831
  Serious: Yes (Hospitalization)
  Sender: FDA-Public Use
  Company Number: 1000018924

PATIENT
  Age: 81 Year
  Sex: Male

DRUGS (3)
  1. WELLBUTRIN XL [Concomitant]
  2. ARICEPT [Concomitant]
  3. NAMENDA [Suspect]
     Indication: DEMENTIA
     Dosage: 5, 10, 20 MG (5 MG, 1 IN 1 D), ORAL
     Route: 048
     Dates: start: 20090101, end: 20090101

REACTIONS (5)
  - AGGRESSION [None]
  - IRRITABILITY [None]
  - MEMORY IMPAIRMENT [None]
  - CONDITION AGGRAVATED [None]
  - DEMENTIA [None]
